FAERS Safety Report 17900334 (Version 2)
Quarter: 2020Q2

REPORT INFORMATION
  Report Type: Spontaneous
  Country: US (occurrence: US)
  Receive Date: 20200616
  Receipt Date: 20200619
  Transmission Date: 20200714
  Serious: Yes (Other)
  Sender: FDA-Public Use
  Company Number: US-PFIZER INC-2020232697

PATIENT
  Age: 47 Year
  Sex: Female
  Weight: 68.04 kg

DRUGS (2)
  1. IBRANCE [Suspect]
     Active Substance: PALBOCICLIB
     Indication: BREAST CANCER METASTATIC
     Dosage: 75 MG, CYCLIC (ONCE A DAY 21 DAYS OFF 7 DAYS)
     Dates: start: 2017
  2. NARDIL [Concomitant]
     Active Substance: PHENELZINE SULFATE
     Dosage: UNK

REACTIONS (1)
  - Neutropenia [Not Recovered/Not Resolved]
